FAERS Safety Report 7986349-4 (Version None)
Quarter: 2011Q4

REPORT INFORMATION
  Report Type: 
  Country: None (occurrence: None)
  Receive Date: 20111216
  Receipt Date: 20101022
  Transmission Date: 20120403
  Serious: No
  Sender: FDA-Public Use
  Company Number: US-GLAXOSMITHKLINE-A0888319A

PATIENT
  Age: 62 Year
  Sex: Female

DRUGS (8)
  1. COREG CR [Suspect]
     Indication: CARDIAC FAILURE CONGESTIVE
     Dosage: 20MG PER DAY
     Route: 048
     Dates: start: 20100301, end: 20100501
  2. LISINOPRIL [Concomitant]
  3. SYNTHROID [Concomitant]
  4. CRESTOR [Concomitant]
     Dosage: 5MG ALTERNATE DAYS
  5. LASIX [Concomitant]
  6. UNSPECIFIED MEDICATION [Concomitant]
  7. GLYBURIDE [Concomitant]
     Dosage: 5MG TWICE PER DAY
  8. UNSPECIFIED MEDICATION [Concomitant]
     Indication: GOUT

REACTIONS (1)
  - BLOOD PRESSURE INCREASED [None]
